FAERS Safety Report 15563109 (Version 1)
Quarter: 2018Q4

REPORT INFORMATION
  Report Type: Spontaneous
  Country: FR (occurrence: FR)
  Receive Date: 20181029
  Receipt Date: 20181029
  Transmission Date: 20190205
  Serious: Yes (Other)
  Sender: FDA-Public Use
  Company Number: FR-009507513-1608FRA012920

PATIENT
  Age: 90 Year
  Sex: Female

DRUGS (6)
  1. AERIUS (DESLORATADINE) [Suspect]
     Active Substance: DESLORATADINE
     Indication: RHINITIS ALLERGIC
     Dosage: 1 TABLET, QD AT NIGHT
     Route: 048
     Dates: start: 201602, end: 201605
  2. SERESTA [Concomitant]
     Active Substance: OXAZEPAM
     Dosage: UNK
  3. SERESTA [Concomitant]
     Active Substance: OXAZEPAM
     Dosage: 3 TABLETS, QD
     Route: 048
     Dates: start: 2009
  4. COVERSYL (PERINDOPRIL ERBUMINE) [Concomitant]
     Active Substance: PERINDOPRIL ERBUMINE
     Dosage: UNK
     Dates: start: 2009
  5. AERIUS (DESLORATADINE) [Suspect]
     Active Substance: DESLORATADINE
     Dosage: 1 TABLET, QD
     Route: 048
     Dates: start: 201602, end: 2018
  6. AERIUS (DESLORATADINE) [Suspect]
     Active Substance: DESLORATADINE
     Dosage: 1 TABLET, QD AT NIGHT
     Route: 048
     Dates: start: 201606

REACTIONS (13)
  - Open fracture [Unknown]
  - Pain [Not Recovered/Not Resolved]
  - Eczema [Unknown]
  - Weight decreased [Unknown]
  - Pruritus generalised [Not Recovered/Not Resolved]
  - Weight decreased [Recovered/Resolved]
  - Tooth loss [Unknown]
  - Fall [Unknown]
  - Oral disorder [Not Recovered/Not Resolved]
  - Throat lesion [Not Recovered/Not Resolved]
  - Thirst [Not Recovered/Not Resolved]
  - Nausea [Unknown]
  - Dry mouth [Not Recovered/Not Resolved]

NARRATIVE: CASE EVENT DATE: 2016
